FAERS Safety Report 7652388-6 (Version None)
Quarter: 2011Q3

REPORT INFORMATION
  Report Type: 
  Country: None (occurrence: None)
  Receive Date: 20110728
  Receipt Date: 20110718
  Transmission Date: 20111222
  Serious: Yes (Hospitalization, Other)
  Sender: FDA-Public Use
  Company Number: 2011-1589

PATIENT
  Age: 41 Year
  Sex: Female
  Weight: 49.8 kg

DRUGS (2)
  1. DYSPORT [Suspect]
     Indication: SKIN WRINKLING
     Dosage: 30 UNITS (30 UNITS, SINGLE CYCLE), INTRAMUSCULAR
     Route: 030
     Dates: start: 20110512, end: 20110512
  2. DYSPORT [Suspect]
     Indication: OFF LABEL USE
     Dosage: 30 UNITS (30 UNITS, SINGLE CYCLE), INTRAMUSCULAR
     Route: 030
     Dates: start: 20110512, end: 20110512

REACTIONS (14)
  - EYE SWELLING [None]
  - PRODUCT QUALITY ISSUE [None]
  - HYPOAESTHESIA [None]
  - DYSPNOEA [None]
  - THROAT TIGHTNESS [None]
  - MUSCLE SPASMS [None]
  - VISION BLURRED [None]
  - NERVOUSNESS [None]
  - SWELLING FACE [None]
  - NECK PAIN [None]
  - FEELING ABNORMAL [None]
  - ANXIETY [None]
  - BOTULISM [None]
  - HYPERSENSITIVITY [None]
